FAERS Safety Report 10369536 (Version 1)
Quarter: 2014Q3

REPORT INFORMATION
  Report Type: Spontaneous
  Country: US (occurrence: US)
  Receive Date: 20140807
  Receipt Date: 20140807
  Transmission Date: 20150326
  Serious: No
  Sender: FDA-Public Use
  Company Number: US-AMGEN-USASP2013063543

PATIENT
  Sex: Male

DRUGS (7)
  1. CYCLOPHOSPHAMIDE. [Concomitant]
     Active Substance: CYCLOPHOSPHAMIDE
     Dosage: UNK
  2. PREDNISOLONE. [Concomitant]
     Active Substance: PREDNISOLONE
     Dosage: UNK
  3. NEULASTA [Suspect]
     Active Substance: PEGFILGRASTIM
     Indication: CONVALESCENT
     Dosage: 6 MG, QD
     Route: 065
     Dates: start: 20130906
  4. RITUXIMAB [Concomitant]
     Active Substance: RITUXIMAB
     Dosage: UNK
  5. DOXORUBICIN [Concomitant]
     Active Substance: DOXORUBICIN
     Dosage: UNK
  6. ONCOVIN [Concomitant]
     Active Substance: VINCRISTINE SULFATE
     Dosage: UNK
  7. NEUPOGEN [Suspect]
     Active Substance: FILGRASTIM
     Indication: CONVALESCENT
     Dosage: 480 MUG, UNK
     Route: 065
     Dates: start: 20130909

REACTIONS (2)
  - Dysphonia [Unknown]
  - Wrong drug administered [Unknown]

NARRATIVE: CASE EVENT DATE: 20130906
